FAERS Safety Report 8308631-3 (Version None)
Quarter: 2012Q2

REPORT INFORMATION
  Report Type: 
  Country: None (occurrence: None)
  Receive Date: 20120424
  Receipt Date: 20110808
  Transmission Date: 20120825
  Serious: Yes (Other)
  Sender: FDA-Public Use
  Company Number: US-TEVA-2010000059

PATIENT
  Sex: Male

DRUGS (1)
  1. PROVIGIL [Suspect]
     Route: 048

REACTIONS (4)
  - DEPRESSION [None]
  - MOOD SWINGS [None]
  - IRRITABILITY [None]
  - NERVOUSNESS [None]
